FAERS Safety Report 4302181-7 (Version None)
Quarter: 2004Q1

REPORT INFORMATION
  Report Type: 
  Country: None (occurrence: None)
  Receive Date: 20040220
  Receipt Date: 20040210
  Transmission Date: 20041129
  Serious: Yes (Death)
  Sender: FDA-Public Use
  Company Number: 2004008271

PATIENT
  Age: 42 Year
  Sex: Male

DRUGS (1)
  1. BEGALIN-P (AMPICILLIN, SULBACTAM) [Suspect]
     Indication: ILL-DEFINED DISORDER
     Dosage: INTRAVENOUS
     Route: 042

REACTIONS (2)
  - BURNING SENSATION [None]
  - INFUSION RELATED REACTION [None]
